FAERS Safety Report 21043186 (Version 1)
Quarter: 2022Q3

REPORT INFORMATION
  Report Type: Spontaneous
  Country: US (occurrence: US)
  Receive Date: 20220705
  Receipt Date: 20220705
  Transmission Date: 20221027
  Serious: No
  Sender: FDA-Public Use
  Company Number: US-ALKERMES INC.-ALK-2022-003147

PATIENT
  Age: 46 Year
  Sex: Female

DRUGS (2)
  1. VIVITROL [Suspect]
     Active Substance: NALTREXONE
     Indication: Alcoholism
     Dosage: 380 MILLIGRAM, QMO
     Route: 030
     Dates: start: 20220602
  2. VIVITROL [Suspect]
     Active Substance: NALTREXONE
     Indication: Mood disorder due to a general medical condition
     Dosage: 380 MILLIGRAM, QMO
     Route: 030
     Dates: start: 20220511, end: 20220511

REACTIONS (4)
  - Fall [Recovered/Resolved]
  - Head injury [Recovered/Resolved]
  - Headache [Not Recovered/Not Resolved]
  - Binge drinking [Unknown]

NARRATIVE: CASE EVENT DATE: 20220601
